FAERS Safety Report 19816570 (Version 4)
Quarter: 2025Q1

REPORT INFORMATION
  Report Type: Report from Study
  Country: NL (occurrence: NL)
  Receive Date: 20210909
  Receipt Date: 20250124
  Transmission Date: 20250409
  Serious: Yes (Hospitalization)
  Sender: SANOFI AVENTIS
  Company Number: NL-SA-2020SA187754

PATIENT
  Age: 28 Year

DRUGS (3)
  1. DUPILUMAB [Suspect]
     Active Substance: DUPILUMAB
     Indication: Dermatitis atopic
     Dosage: 300 MG, QOW
     Route: 058
     Dates: start: 20190828
  2. BETAMETHASONE [Concomitant]
     Active Substance: BETAMETHASONE
     Dosage: UNK UNK, QD
  3. CLOMID [Concomitant]
     Active Substance: CLOMIPHENE CITRATE
     Dosage: 25 MG, QOD
     Route: 065

REACTIONS (4)
  - Post procedural infection [Recovered/Resolved]
  - Alopecia [Unknown]
  - Hair growth abnormal [Recovered/Resolved]
  - Conjunctivitis [Not Recovered/Not Resolved]

NARRATIVE: CASE EVENT DATE: 20190911
